FAERS Safety Report 19169505 (Version 1)
Quarter: 2021Q2

REPORT INFORMATION
  Report Type: Spontaneous
  Country: US (occurrence: US)
  Receive Date: 20210422
  Receipt Date: 20210422
  Transmission Date: 20210717
  Serious: No
  Sender: FDA-Public Use
  Company Number: US-DERMIRA, INC.-US-2021DER000025

PATIENT
  Sex: Male

DRUGS (1)
  1. QBREXZA [Suspect]
     Active Substance: GLYCOPYRRONIUM TOSYLATE
     Indication: HYPERHIDROSIS
     Dosage: UNK UNK, QD
     Route: 061
     Dates: start: 202009

REACTIONS (2)
  - Skin odour abnormal [Not Recovered/Not Resolved]
  - Thirst [Not Recovered/Not Resolved]
